FAERS Safety Report 25372099 (Version 2)
Quarter: 2025Q2

REPORT INFORMATION
  Report Type: Spontaneous
  Country: ES (occurrence: ES)
  Receive Date: 20250529
  Receipt Date: 20250609
  Transmission Date: 20250717
  Serious: Yes (Other)
  Sender: AUROBINDO
  Company Number: ES-UCBSA-2024044224

PATIENT
  Age: 35 Year
  Sex: Male

DRUGS (12)
  1. LEVETIRACETAM [Suspect]
     Active Substance: LEVETIRACETAM
     Indication: Epilepsy
     Route: 065
  2. LEVETIRACETAM [Suspect]
     Active Substance: LEVETIRACETAM
     Indication: Haemangioma
     Dosage: 1000 MILLIGRAM, ONCE A DAY [500 MILLIGRAM, 2X/DAY (BID)]
     Route: 065
  3. LEVETIRACETAM [Suspect]
     Active Substance: LEVETIRACETAM
     Indication: Seizure
  4. VALPROATE SODIUM [Suspect]
     Active Substance: VALPROATE SODIUM
     Indication: Epilepsy
     Route: 065
  5. VALPROATE SODIUM [Suspect]
     Active Substance: VALPROATE SODIUM
     Indication: Haemangioma
  6. VALPROATE SODIUM [Suspect]
     Active Substance: VALPROATE SODIUM
     Indication: Seizure
  7. ZONISAMIDE [Suspect]
     Active Substance: ZONISAMIDE
     Indication: Seizure
  8. PHENYTOIN [Concomitant]
     Active Substance: PHENYTOIN
     Indication: Haemangioma
     Route: 065
  9. PHENYTOIN [Concomitant]
     Active Substance: PHENYTOIN
     Indication: Epilepsy
  10. PHENYTOIN [Concomitant]
     Active Substance: PHENYTOIN
     Indication: Seizure
  11. PREDNISONE [Concomitant]
     Active Substance: PREDNISONE
     Indication: Epilepsy
     Dosage: 60 MILLIGRAM, ONCE A DAY [30 MILLIGRAM, 2X/DAY (BID)]
     Route: 048
  12. PREDNISONE [Concomitant]
     Active Substance: PREDNISONE
     Indication: Haemangioma

REACTIONS (3)
  - Drug reaction with eosinophilia and systemic symptoms [Recovered/Resolved]
  - Condition aggravated [Recovered/Resolved]
  - Off label use [Unknown]
